FAERS Safety Report 10544123 (Version 1)
Quarter: 2014Q4

REPORT INFORMATION
  Report Type: Spontaneous
  Country: US (occurrence: None)
  Receive Date: 20141024
  Receipt Date: 20141024
  Transmission Date: 20150529
  Serious: Yes (Hospitalization)
  Sender: FDA-Public Use
  Company Number: None

PATIENT
  Age: 51 Year
  Sex: Female
  Weight: 73.94 kg

DRUGS (14)
  1. METHOTREXATE [Concomitant]
     Active Substance: METHOTREXATE
  2. BENADRYL ALLERGY CAPS [Concomitant]
  3. LISINOPRIL. [Concomitant]
     Active Substance: LISINOPRIL
  4. ZOLOFT [Concomitant]
     Active Substance: SERTRALINE HYDROCHLORIDE
  5. ADVAIR DISKUS [Concomitant]
     Active Substance: FLUTICASONE PROPIONATE\SALMETEROL XINAFOATE
  6. THEOPHYLLINE CR [Concomitant]
     Active Substance: THEOPHYLLINE ANHYDROUS
  7. ACTEMRA [Suspect]
     Active Substance: TOCILIZUMAB
     Indication: RHEUMATOID ARTHRITIS
     Route: 058
     Dates: start: 20140808, end: 20141010
  8. SINGULAIR [Concomitant]
     Active Substance: MONTELUKAST SODIUM
  9. VENTOLIN HFA AERS [Concomitant]
  10. MUCINEX MAXIMUM STRENGTH XR12H [Concomitant]
  11. ULTRACET [Concomitant]
     Active Substance: ACETAMINOPHEN\TRAMADOL HYDROCHLORIDE
  12. OXYGEN. [Concomitant]
     Active Substance: OXYGEN
  13. LEUCOVORIN CALCIUM. [Concomitant]
     Active Substance: LEUCOVORIN CALCIUM
  14. AMBIEN CR [Concomitant]
     Active Substance: ZOLPIDEM TARTRATE

REACTIONS (7)
  - Confusional state [None]
  - Hypersensitivity [None]
  - Dyspnoea [None]
  - Arthritis [None]
  - Rash pruritic [None]
  - Rash erythematous [None]
  - Rash generalised [None]

NARRATIVE: CASE EVENT DATE: 20141010
